FAERS Safety Report 5532993-3 (Version None)
Quarter: 2007Q4

REPORT INFORMATION
  Report Type: 
  Country: None (occurrence: None)
  Receive Date: 20071204
  Receipt Date: 20071119
  Transmission Date: 20080405
  Serious: Yes (Hospitalization)
  Sender: FDA-Public Use
  Company Number: FR-ASTRAZENECA-2001SE09503

PATIENT
  Age: 53 Year
  Sex: Male

DRUGS (4)
  1. KENZEN [Suspect]
     Indication: HYPERTENSION
     Route: 048
     Dates: start: 20011031, end: 20011120
  2. COKENZEN [Suspect]
     Indication: HYPERTENSION
     Route: 048
     Dates: start: 20011025, end: 20011030
  3. ALLOPURINOL [Concomitant]
     Indication: GOUT
     Route: 048
     Dates: start: 20011031, end: 20011109
  4. CHRONADALATE [Concomitant]
     Indication: HYPERTENSION
     Route: 048
     Dates: start: 20011031, end: 20011104

REACTIONS (1)
  - ERYTHEMA MULTIFORME [None]
